FAERS Safety Report 18909987 (Version 1)
Quarter: 2021Q1

REPORT INFORMATION
  Report Type: Spontaneous
  Country: US (occurrence: US)
  Receive Date: 20210218
  Receipt Date: 20210218
  Transmission Date: 20210420
  Serious: Yes (Other)
  Sender: FDA-Public Use
  Company Number: None

PATIENT
  Sex: Female

DRUGS (1)
  1. TOLTERODINE [Suspect]
     Active Substance: TOLTERODINE

REACTIONS (2)
  - Drug ineffective [None]
  - Dry mouth [None]
